FAERS Safety Report 5108073-8 (Version None)
Quarter: 2006Q3

REPORT INFORMATION
  Report Type: 
  Country: None (occurrence: None)
  Receive Date: 20060919
  Receipt Date: 20060908
  Transmission Date: 20061208
  Serious: Yes (Hospitalization, Other)
  Sender: FDA-Public Use
  Company Number: JP-BRISTOL-MYERS SQUIBB COMPANY-13510649

PATIENT
  Age: 9 Decade
  Sex: Male

DRUGS (8)
  1. SINEMET [Suspect]
     Indication: PARKINSON'S DISEASE
     Route: 048
     Dates: start: 20060903
  2. CABASER [Suspect]
     Indication: PARKINSON'S DISEASE
     Dates: end: 20060904
  3. PERMAX [Suspect]
     Indication: PARKINSON'S DISEASE
     Dates: end: 20060904
  4. DOPS [Suspect]
     Indication: PARKINSON'S DISEASE
     Dates: end: 20060904
  5. SELEGILINE HCL [Suspect]
     Indication: PARKINSON'S DISEASE
     Dates: end: 20060904
  6. ARTANE [Suspect]
     Indication: PARKINSON'S DISEASE
     Dates: end: 20060904
  7. SIFROL [Suspect]
     Indication: PARKINSON'S DISEASE
     Dates: end: 20060904
  8. SYMMETREL [Concomitant]
     Dates: start: 20060903

REACTIONS (3)
  - INTESTINAL OBSTRUCTION [None]
  - PYREXIA [None]
  - URINE ANALYSIS ABNORMAL [None]
